FAERS Safety Report 13449352 (Version 2)
Quarter: 2017Q2

REPORT INFORMATION
  Report Type: Spontaneous
  Country: AU (occurrence: AU)
  Receive Date: 20170417
  Receipt Date: 20170613
  Transmission Date: 20170830
  Serious: Yes (Death, Other)
  Sender: FDA-Public Use
  Company Number: AU-SA-2017SA064389

PATIENT
  Age: 43 Year
  Sex: Female

DRUGS (3)
  1. OXYCODONE [Suspect]
     Active Substance: OXYCODONE
     Indication: PAIN
     Dosage: 24 BOXES
     Route: 065
  2. STILNOX [Suspect]
     Active Substance: ZOLPIDEM TARTRATE
     Indication: PAIN
     Dosage: 5 BOXES
     Route: 065
  3. METHADONE [Suspect]
     Active Substance: METHADONE HYDROCHLORIDE
     Indication: PAIN
     Dosage: 9 BOXES
     Route: 065

REACTIONS (5)
  - Drug interaction [Fatal]
  - Dependence [Unknown]
  - Overdose [Fatal]
  - Prescribed overdose [Fatal]
  - Drug ineffective [Unknown]

NARRATIVE: CASE EVENT DATE: 201507
